FAERS Safety Report 19207546 (Version 1)
Quarter: 2021Q2

REPORT INFORMATION
  Report Type: Spontaneous
  Country: TW (occurrence: TW)
  Receive Date: 20210503
  Receipt Date: 20210503
  Transmission Date: 20210717
  Serious: Yes (Other)
  Sender: FDA-Public Use
  Company Number: TW-JNJFOC-20210452660

PATIENT

DRUGS (1)
  1. XARELTO [Suspect]
     Active Substance: RIVAROXABAN
     Indication: DEEP VEIN THROMBOSIS
     Dosage: 10 MG, BID
     Route: 048
     Dates: start: 2018

REACTIONS (5)
  - Surgery [Unknown]
  - Off label use [Unknown]
  - Impaired healing [Not Recovered/Not Resolved]
  - Incorrect dose administered [Unknown]
  - Ischaemia [Unknown]

NARRATIVE: CASE EVENT DATE: 2018
